FAERS Safety Report 25155361 (Version 1)
Quarter: 2025Q2

REPORT INFORMATION
  Report Type: Other
  Country: CA (occurrence: CA)
  Receive Date: 20250403
  Receipt Date: 20250403
  Transmission Date: 20250717
  Serious: No
  Sender: TOLMAR
  Company Number: CA-20250314-bd516c

PATIENT
  Sex: Male

DRUGS (2)
  1. ELIGARD [Suspect]
     Active Substance: LEUPROLIDE ACETATE
     Indication: Prostate cancer
     Dosage: 22.5 MILLIGRAMS, Q 3 MONTHS
     Route: 058
     Dates: start: 20241219
  2. ELIGARD [Suspect]
     Active Substance: LEUPROLIDE ACETATE
     Dosage: 22.5 MILLIGRAMS, Q 3 MONTHS
     Route: 058
     Dates: start: 20250314

REACTIONS (2)
  - Arthralgia [Unknown]
  - Myalgia [Unknown]
